FAERS Safety Report 5104094-X (Version None)
Quarter: 2006Q3

REPORT INFORMATION
  Report Type: 
  Country: None (occurrence: None)
  Receive Date: 20060913
  Receipt Date: 20060511
  Transmission Date: 20061208
  Serious: Yes (Hospitalization)
  Sender: FDA-Public Use
  Company Number: US-BOEHRINGER INGELHEIM PHARMACEUTICALS, INC.-2006-BP-05383BP

PATIENT
  Age: 72 Year
  Sex: Female
  Weight: 56.7 kg

DRUGS (14)
  1. ATROVENT [Suspect]
     Indication: CHRONIC OBSTRUCTIVE PULMONARY DISEASE
     Route: 055
     Dates: start: 19960101
  2. ALBUTEROL [Concomitant]
     Indication: CHRONIC OBSTRUCTIVE PULMONARY DISEASE
  3. SALINE [Concomitant]
  4. TIAZAC [Concomitant]
  5. ATARAX [Concomitant]
  6. MEDROXYPR [Concomitant]
  7. ACTONEL [Concomitant]
  8. PRIMIDONE [Concomitant]
  9. ZELNORM [Concomitant]
  10. LEVOXYL [Concomitant]
  11. HYDROCHLOROT [Concomitant]
  12. FLOVENT [Concomitant]
  13. ATROVENT [Concomitant]
  14. PULMATE W/ ALBUTEROL [Concomitant]

REACTIONS (3)
  - CYSTOCELE [None]
  - HAEMATOMA [None]
  - RECTOCELE [None]
